FAERS Safety Report 9750954 (Version 1)
Quarter: 2013Q4

REPORT INFORMATION
  Report Type: Spontaneous
  Country: US (occurrence: US)
  Receive Date: 20131212
  Receipt Date: 20131212
  Transmission Date: 20140711
  Serious: No
  Sender: FDA-Public Use
  Company Number: US-TEVA-400244USA

PATIENT
  Age: 33 Year
  Sex: Female
  Weight: 86.71 kg

DRUGS (2)
  1. PARAGARD 380A [Suspect]
     Indication: CONTRACEPTION
     Route: 015
     Dates: start: 20130412, end: 20130412
  2. LOTREL [Concomitant]
     Indication: HYPERTENSION

REACTIONS (2)
  - Pain [Recovered/Resolved]
  - Complication of device insertion [Recovered/Resolved]
